FAERS Safety Report 10668655 (Version 1)
Quarter: 2014Q4

REPORT INFORMATION
  Report Type: Spontaneous
  Country: US (occurrence: US)
  Receive Date: 20141222
  Receipt Date: 20141222
  Transmission Date: 20150529
  Serious: No
  Sender: FDA-Public Use
  Company Number: US-ASTRAZENECA-2014SE26236

PATIENT
  Sex: Female

DRUGS (1)
  1. FELODIPINE. [Suspect]
     Active Substance: FELODIPINE
     Route: 048

REACTIONS (3)
  - Cluster headache [Unknown]
  - Pruritus [Unknown]
  - Lacrimation increased [Unknown]
